FAERS Safety Report 8216114-4 (Version None)
Quarter: 2012Q1

REPORT INFORMATION
  Report Type: 
  Country: None (occurrence: None)
  Receive Date: 20120316
  Receipt Date: 20120307
  Transmission Date: 20120608
  Serious: Yes (Hospitalization, Disabling)
  Sender: FDA-Public Use
  Company Number: AT-EISAI INC-E7389-02149-SPO-AT

PATIENT
  Sex: Female
  Weight: 68 kg

DRUGS (6)
  1. BISOPROLOL FUMARATE [Concomitant]
  2. TRAZODONE HCL [Concomitant]
  3. VALACICLOVIR [Concomitant]
  4. NEUROBION [Concomitant]
  5. AROMASIN [Concomitant]
  6. HALAVEN [Suspect]
     Route: 041
     Dates: end: 20120101

REACTIONS (3)
  - GAIT DISTURBANCE [None]
  - PERIPHERAL SENSORY NEUROPATHY [None]
  - DIZZINESS [None]
